FAERS Safety Report 13952634 (Version 1)
Quarter: 2017Q3

REPORT INFORMATION
  Report Type: Spontaneous
  Country: US (occurrence: US)
  Receive Date: 20170911
  Receipt Date: 20170911
  Transmission Date: 20171128
  Serious: Yes (Hospitalization, Other)
  Sender: FDA-Public Use
  Company Number: US-ROCHE-1990271

PATIENT
  Age: 59 Year
  Sex: Male

DRUGS (1)
  1. ACTIVASE [Suspect]
     Active Substance: ALTEPLASE
     Indication: CEREBROVASCULAR ACCIDENT
     Dosage: ACCORDING TO THE PATIENT^S WEIGHT.
     Route: 042

REACTIONS (6)
  - Blood pressure systolic decreased [Recovered/Resolved]
  - Cerebrovascular accident [Recovered/Resolved]
  - Nausea [Recovered/Resolved]
  - Blindness [Recovered/Resolved]
  - Vomiting [Recovered/Resolved]
  - Hypotension [Recovered/Resolved]
